FAERS Safety Report 9485029 (Version 1)
Quarter: 2013Q3

REPORT INFORMATION
  Report Type: Spontaneous
  Country: JP (occurrence: JP)
  Receive Date: 20130828
  Receipt Date: 20130828
  Transmission Date: 20140515
  Serious: Yes (Hospitalization)
  Sender: FDA-Public Use
  Company Number: JP-MYLANLABS-2013S1018516

PATIENT
  Age: 82 Year
  Sex: Male
  Weight: 70 kg

DRUGS (9)
  1. PREDNISOLONE [Suspect]
     Indication: RHEUMATOID ARTHRITIS
     Route: 048
  2. RABEPRAZOLE [Concomitant]
     Dosage: 10MG DAILY
     Route: 065
  3. ASPIRIN [Concomitant]
     Dosage: 100MG DAILY
     Route: 065
  4. PITAVASTATIN [Concomitant]
     Dosage: 2MG DAILY
     Route: 065
  5. CILNIDIPINE [Concomitant]
     Dosage: 20MG DAILY
     Route: 065
  6. CANDESARTAN CILEXETIL [Concomitant]
     Dosage: 12MG DAILY
     Route: 065
  7. SULFASALAZINE [Concomitant]
     Dosage: 1000MG DAILY
     Route: 065
  8. INSULIN ASPART [Concomitant]
     Indication: TYPE 2 DIABETES MELLITUS
     Dosage: 56 UNITS/DAY (24 UNITS BEFORE BREAKFAST, 14 UNITS BEFORE LUNCH AND 18 UNITS BEFORE DINNER)
  9. INSULIN ASPART [Concomitant]
     Indication: TYPE 2 DIABETES MELLITUS
     Dosage: 38 UNITS/DAY

REACTIONS (2)
  - Hyperglycaemia [Recovered/Resolved]
  - Hypoglycaemia [Recovered/Resolved]
